FAERS Safety Report 9196876 (Version 1)
Quarter: 2013Q1

REPORT INFORMATION
  Report Type: Spontaneous
  Country: US (occurrence: US)
  Receive Date: 20130328
  Receipt Date: 20130328
  Transmission Date: 20140127
  Serious: Yes (Other)
  Sender: FDA-Public Use
  Company Number: US-BAYER-2013-036677

PATIENT
  Sex: Female

DRUGS (3)
  1. AVELOX [Suspect]
     Indication: BRONCHITIS
     Dosage: UNK
     Route: 048
     Dates: start: 20130318
  2. MAGNESIUM [Concomitant]
  3. UNKNOWN [Concomitant]

REACTIONS (4)
  - Gait disturbance [Recovering/Resolving]
  - Feeling cold [None]
  - Nervous system disorder [None]
  - Diarrhoea [Recovering/Resolving]
